FAERS Safety Report 12341888 (Version 1)
Quarter: 2016Q2

REPORT INFORMATION
  Report Type: Spontaneous
  Country: US (occurrence: US)
  Receive Date: 20160506
  Receipt Date: 20160506
  Transmission Date: 20160815
  Serious: No
  Sender: FDA-Public Use
  Company Number: US-ACTELION-A-NJ2015-125352

PATIENT
  Age: 38 Year
  Sex: Female

DRUGS (2)
  1. VELETRI [Suspect]
     Active Substance: EPOPROSTENOL
     Indication: PULMONARY ARTERIAL HYPERTENSION
     Dosage: 87 NG/KG, PER MIN
     Route: 042
     Dates: start: 20110325
  2. ADCIRCA [Concomitant]
     Active Substance: TADALAFIL

REACTIONS (4)
  - Device alarm issue [Unknown]
  - Catheter placement [Unknown]
  - Catheter site haemorrhage [Unknown]
  - Device occlusion [Unknown]
